FAERS Safety Report 7747653-8 (Version None)
Quarter: 2011Q3

REPORT INFORMATION
  Report Type: 
  Country: None (occurrence: None)
  Receive Date: 20110909
  Receipt Date: 20110830
  Transmission Date: 20111222
  Serious: Yes (Hospitalization)
  Sender: FDA-Public Use
  Company Number: DKLU1063779

PATIENT
  Age: 43 Year
  Sex: Female

DRUGS (14)
  1. XIFAXAN (XIFAXAN) [Concomitant]
     Indication: ENCEPHALOPATHY
     Dosage: 500 MG MILLIGRAM(S), 2 IN 1 D, ORAL
     Route: 048
  2. ATIVAN [Concomitant]
  3. LACTUCOSE (LACTUCOSE) [Concomitant]
  4. KEPPRA [Concomitant]
  5. SABRIL [Suspect]
     Indication: EPILEPSY
     Dosage: SEE IMAGE
     Route: 048
     Dates: start: 20100401
  6. SABRIL [Suspect]
     Indication: COMPLEX PARTIAL SEIZURES
     Dosage: SEE IMAGE
     Route: 048
     Dates: start: 20100401
  7. SABRIL [Suspect]
     Indication: EPILEPSY
     Dosage: SEE IMAGE
     Route: 048
     Dates: start: 20100401
  8. SABRIL [Suspect]
     Indication: COMPLEX PARTIAL SEIZURES
     Dosage: SEE IMAGE
     Route: 048
     Dates: start: 20100401
  9. SABRIL [Suspect]
     Indication: EPILEPSY
     Dosage: SEE IMAGE
     Route: 048
     Dates: start: 20100201, end: 20100101
  10. SABRIL [Suspect]
     Indication: COMPLEX PARTIAL SEIZURES
     Dosage: SEE IMAGE
     Route: 048
     Dates: start: 20100201, end: 20100101
  11. SABRIL [Suspect]
     Indication: EPILEPSY
     Dosage: SEE IMAGE
     Route: 048
     Dates: start: 20100201
  12. SABRIL [Suspect]
     Indication: COMPLEX PARTIAL SEIZURES
     Dosage: SEE IMAGE
     Route: 048
     Dates: start: 20100201
  13. LYRICA [Concomitant]
  14. LAMICTAL [Concomitant]

REACTIONS (8)
  - AMMONIA INCREASED [None]
  - DRUG HYPERSENSITIVITY [None]
  - ENCEPHALOPATHY [None]
  - AMNESIA [None]
  - DYSPNOEA [None]
  - URINARY TRACT INFECTION [None]
  - CHEST PAIN [None]
  - FATIGUE [None]
